FAERS Safety Report 6058492-0 (Version None)
Quarter: 2009Q1

REPORT INFORMATION
  Report Type: 
  Country: None (occurrence: None)
  Receive Date: 20090130
  Receipt Date: 20090122
  Transmission Date: 20090719
  Serious: Yes (Other)
  Sender: FDA-Public Use
  Company Number: PHHY2008JP21201

PATIENT
  Age: 62 Year
  Sex: Male

DRUGS (5)
  1. GLEEVEC [Suspect]
     Indication: CHRONIC MYELOID LEUKAEMIA
     Dosage: 400 MG
     Route: 048
     Dates: start: 20020110
  2. ALLELOCK [Concomitant]
     Dosage: 10 MG
     Route: 048
     Dates: start: 20080513, end: 20080610
  3. GASTER [Concomitant]
     Dosage: 20 MG
     Route: 048
     Dates: start: 20080529
  4. SELBEX [Concomitant]
     Dosage: 150 MG
     Route: 048
     Dates: start: 20080529
  5. EBASTEL [Concomitant]
     Dosage: 5 MG
     Route: 048
     Dates: end: 20080512

REACTIONS (5)
  - CENTRAL NERVOUS SYSTEM LESION [None]
  - CSF CELL COUNT INCREASED [None]
  - DEPRESSED LEVEL OF CONSCIOUSNESS [None]
  - ENCEPHALITIS [None]
  - PYREXIA [None]
